FAERS Safety Report 22342137 (Version 2)
Quarter: 2023Q2

REPORT INFORMATION
  Report Type: Report from Study
  Country: US (occurrence: US)
  Receive Date: 20230519
  Receipt Date: 20230629
  Transmission Date: 20230722
  Serious: Yes (Other)
  Sender: FDA-Public Use
  Company Number: US-ABBVIE-4770635

PATIENT
  Age: 46 Year
  Sex: Female

DRUGS (1)
  1. HUMIRA [Suspect]
     Active Substance: ADALIMUMAB
     Indication: Crohn^s disease
     Dosage: CITRATE FREE?FORM STRENGTH: 40 MG
     Route: 058
     Dates: start: 20230310

REACTIONS (2)
  - Drain site complication [Unknown]
  - Abscess [Unknown]

NARRATIVE: CASE EVENT DATE: 20230501
